APPROVED DRUG PRODUCT: CATAPRES-TTS-3
Active Ingredient: CLONIDINE
Strength: 0.3MG/24HR
Dosage Form/Route: SYSTEM;TRANSDERMAL
Application: N018891 | Product #003 | TE Code: AB
Applicant: LAVIPHARM SA
Approved: Oct 10, 1984 | RLD: Yes | RS: Yes | Type: RX